FAERS Safety Report 9130852 (Version 1)
Quarter: 2013Q1

REPORT INFORMATION
  Report Type: Spontaneous
  Country: US (occurrence: US)
  Receive Date: 20130301
  Receipt Date: 20130301
  Transmission Date: 20140127
  Serious: No
  Sender: FDA-Public Use
  Company Number: US-009507513-1302USA013757

PATIENT
  Age: 57 None
  Sex: Female

DRUGS (3)
  1. PEG-INTRON [Suspect]
     Indication: HEPATITIS C
     Dosage: UNK
     Dates: start: 20130101
  2. RIBAVIRIN [Suspect]
     Indication: HEPATITIS C
     Dosage: UNK
     Dates: start: 20130101
  3. RIBAVIRIN [Suspect]
     Dosage: 3 PILLS IN AM AND 2 PILLS AT NIGHT

REACTIONS (2)
  - Nausea [Unknown]
  - Haemoglobin decreased [Unknown]
